FAERS Safety Report 11299388 (Version 1)
Quarter: 2015Q3

REPORT INFORMATION
  Report Type: Spontaneous
  Country: US (occurrence: US)
  Receive Date: 20150722
  Receipt Date: 20150722
  Transmission Date: 20151125
  Serious: No
  Sender: FDA-Public Use
  Company Number: US-ELI_LILLY_AND_COMPANY-US201210004644

PATIENT
  Sex: Female

DRUGS (4)
  1. POTASSIUM [Concomitant]
     Active Substance: POTASSIUM
  2. SYNTHROID [Concomitant]
     Active Substance: LEVOTHYROXINE SODIUM
     Dosage: 0.175 UG, UNK
  3. VITAMIN C [Concomitant]
     Active Substance: ASCORBIC ACID
  4. HUMATROPE [Suspect]
     Active Substance: SOMATROPIN
     Dosage: 0.03 MG, QD

REACTIONS (1)
  - Nerve compression [Unknown]
